FAERS Safety Report 5261484-2 (Version None)
Quarter: 2007Q1

REPORT INFORMATION
  Report Type: 
  Country: None (occurrence: None)
  Receive Date: 20070307
  Receipt Date: 20070222
  Transmission Date: 20070707
  Serious: Yes (Hospitalization)
  Sender: FDA-Public Use
  Company Number: 2007SP003378

PATIENT
  Age: 57 Year
  Sex: Male
  Weight: 69 kg

DRUGS (5)
  1. PEG-INTRON [Suspect]
     Indication: HEPATITIS C
     Dosage: 80 MCG;QW;SS
     Route: 058
     Dates: start: 20061122, end: 20061220
  2. REBETOL [Suspect]
     Indication: HEPATITIS C
     Dosage: 800 MG; QD; PO; 600 MG; QD; PO
     Route: 048
     Dates: start: 20061122, end: 20061206
  3. REBETOL [Suspect]
     Indication: HEPATITIS C
     Dosage: 800 MG; QD; PO; 600 MG; QD; PO
     Route: 048
     Dates: start: 20061207, end: 20061226
  4. DIAZEPAM (CON.) [Concomitant]
  5. ADEFURONIC (CON.) [Concomitant]

REACTIONS (3)
  - CARDIAC FAILURE CONGESTIVE [None]
  - CARDIOMYOPATHY [None]
  - HAEMOGLOBIN DECREASED [None]
